FAERS Safety Report 8529586 (Version 3)
Quarter: 2013Q4

REPORT INFORMATION
  Report Type: Spontaneous
  Country: US (occurrence: US)
  Receive Date: 20120425
  Receipt Date: 20131114
  Transmission Date: 20140711
  Serious: Yes (Other)
  Sender: FDA-Public Use
  Company Number: US-ROCHE-1061711

PATIENT
  Age: 14 Year
  Sex: Male
  Weight: 77.18 kg

DRUGS (3)
  1. ACCUTANE [Suspect]
     Indication: ACNE
     Route: 048
     Dates: start: 20060525, end: 20061220
  2. ACCUTANE [Suspect]
     Route: 048
     Dates: end: 20070117
  3. SOTRET [Suspect]
     Indication: ACNE
     Route: 048
     Dates: start: 20060527, end: 20061222

REACTIONS (11)
  - Colitis ulcerative [Unknown]
  - Crohn^s disease [Unknown]
  - Inflammatory bowel disease [Unknown]
  - Irritable bowel syndrome [Unknown]
  - Anxiety [Unknown]
  - Depression [Unknown]
  - Suicidal ideation [Unknown]
  - Arthralgia [Unknown]
  - Epistaxis [Unknown]
  - Lip dry [Unknown]
  - Acne [Unknown]
